FAERS Safety Report 18168717 (Version 1)
Quarter: 2020Q3

REPORT INFORMATION
  Report Type: Spontaneous
  Country: GB (occurrence: GB)
  Receive Date: 20200819
  Receipt Date: 20200819
  Transmission Date: 20201103
  Serious: Yes (Hospitalization, Other)
  Sender: FDA-Public Use
  Company Number: GB-TEVA-2020-GB-1816078

PATIENT
  Age: 71 Year
  Sex: Male
  Weight: 114.3 kg

DRUGS (6)
  1. THYROXINE [Concomitant]
     Active Substance: LEVOTHYROXINE
  2. COCODAMOL [Concomitant]
     Active Substance: ACETAMINOPHEN\CODEINE PHOSPHATE
  3. LERCANIDIPINE [Concomitant]
     Active Substance: LERCANIDIPINE
  4. TAMSULOSIN [Suspect]
     Active Substance: TAMSULOSIN
     Indication: PROSTATOMEGALY
     Dosage: 1 DF
     Route: 048
     Dates: start: 20191101, end: 20191222
  5. OMEPRAZOLE. [Concomitant]
     Active Substance: OMEPRAZOLE
  6. PARACETAMOL [Concomitant]
     Active Substance: ACETAMINOPHEN

REACTIONS (11)
  - Ocular icterus [Unknown]
  - Pruritus [Unknown]
  - Gallbladder disorder [Unknown]
  - Chromaturia [Unknown]
  - Abdominal pain upper [Recovered/Resolved]
  - Liver disorder [Unknown]
  - Abdominal discomfort [Recovered/Resolved]
  - Muscle spasms [Unknown]
  - Yellow skin [Unknown]
  - Faeces discoloured [Unknown]
  - Biliary tract disorder [Unknown]

NARRATIVE: CASE EVENT DATE: 20191222
